FAERS Safety Report 18546930 (Version 1)
Quarter: 2020Q4

REPORT INFORMATION
  Report Type: Spontaneous
  Country: CN (occurrence: CN)
  Receive Date: 20201125
  Receipt Date: 20201125
  Transmission Date: 20210114
  Serious: Yes (Other)
  Sender: FDA-Public Use
  Company Number: CN-PFIZER INC-2020458235

PATIENT
  Age: 81 Year
  Sex: Female

DRUGS (9)
  1. SODIUM ACETATE RINGER [Concomitant]
     Dosage: UNK
     Route: 041
     Dates: start: 20200817, end: 20200822
  2. SODIUM CHLORIDE. [Concomitant]
     Active Substance: SODIUM CHLORIDE
     Dosage: UNK
     Route: 041
     Dates: start: 20200817, end: 20200822
  3. VITAMIN B6 [Concomitant]
     Active Substance: PYRIDOXINE HYDROCHLORIDE
     Dosage: 100 MG
  4. POTASSIUM CHLORIDE. [Concomitant]
     Active Substance: POTASSIUM CHLORIDE
     Dosage: 1.5 G
  5. POTASSIUM MAGNESIUM ASPARTATE [Concomitant]
     Active Substance: MAGNESIUM ASPARTATE\POTASSIUM ASPARTATE
     Dosage: 10 MG
  6. ALANYL GLUTAMINE [Concomitant]
     Active Substance: ALANYL GLUTAMINE
     Dosage: 2 G
     Route: 041
     Dates: start: 20200817, end: 20200822
  7. VITAMIN C ACID [Concomitant]
     Active Substance: ASCORBIC ACID
     Dosage: 1 G
  8. TAZOCIN [Suspect]
     Active Substance: PIPERACILLIN SODIUM\TAZOBACTAM SODIUM
     Indication: INTESTINAL OBSTRUCTION
     Dosage: 4.5 G
     Route: 041
     Dates: start: 20200817, end: 20200822
  9. TAZOCIN [Suspect]
     Active Substance: PIPERACILLIN SODIUM\TAZOBACTAM SODIUM
     Indication: SEPSIS

REACTIONS (9)
  - Oxygen saturation decreased [Recovered/Resolved]
  - Rash [Recovered/Resolved]
  - Nausea [Unknown]
  - Papule [Recovered/Resolved]
  - Heart rate increased [Recovered/Resolved]
  - Erythema [Recovered/Resolved]
  - Vomiting [Unknown]
  - Drug hypersensitivity [Recovered/Resolved]
  - Skin oedema [Recovered/Resolved]

NARRATIVE: CASE EVENT DATE: 20200822
